FAERS Safety Report 10009275 (Version 2)
Quarter: 2014Q1

REPORT INFORMATION
  Report Type: Report from Study
  Country: US (occurrence: US)
  Receive Date: 20140313
  Receipt Date: 20140321
  Transmission Date: 20141002
  Serious: Yes (Hospitalization)
  Sender: FDA-Public Use
  Company Number: PHEH2014US005028

PATIENT
  Age: 13 Year
  Sex: Male
  Weight: 49.7 kg

DRUGS (2)
  1. TOBI [Suspect]
     Indication: CYSTIC FIBROSIS
     Dosage: 300 MG, BID FOR 28 DAYS
     Route: 055
  2. TIMENTIN                           /00973701/ [Concomitant]
     Dosage: UNK
     Route: 042

REACTIONS (1)
  - Respiratory disorder [Recovering/Resolving]
